FAERS Safety Report 5351086-1 (Version None)
Quarter: 2007Q2

REPORT INFORMATION
  Report Type: 
  Country: None (occurrence: None)
  Receive Date: 20070608
  Receipt Date: 20070529
  Transmission Date: 20071010
  Serious: Yes (Disabling)
  Sender: FDA-Public Use
  Company Number: GB-PFIZER INC-2007037783

PATIENT
  Sex: Female
  Weight: 50.6 kg

DRUGS (6)
  1. EXUBERA [Suspect]
     Indication: DIABETES MELLITUS INSULIN-DEPENDENT
     Dosage: DAILY DOSE:19MG
     Route: 055
     Dates: start: 20070312, end: 20070426
  2. INSULIN DETEMIR [Concomitant]
  3. TRAMADOL HCL [Concomitant]
     Indication: BACK PAIN
  4. RAMIPRIL [Concomitant]
     Indication: HYPERTENSION
     Route: 048
  5. ROSUVASTATIN [Concomitant]
     Indication: HYPERLIPIDAEMIA
     Route: 048
  6. LANSOPRAZOLE [Concomitant]
     Route: 048

REACTIONS (3)
  - BLOOD GLUCOSE ABNORMAL [None]
  - ORTHOSTATIC HYPOTENSION [None]
  - WEIGHT DECREASED [None]
